FAERS Safety Report 4818691-X (Version None)
Quarter: 2005Q4

REPORT INFORMATION
  Report Type: 
  Country: None (occurrence: None)
  Receive Date: 20051102
  Receipt Date: 20050307
  Transmission Date: 20060501
  Serious: Yes (Hospitalization, Disabling)
  Sender: FDA-Public Use
  Company Number: US-MERCK-0503USA01236

PATIENT
  Age: 57 Year
  Sex: Male
  Weight: 86 kg

DRUGS (5)
  1. VIOXX [Suspect]
     Indication: ARTHRALGIA
     Route: 048
     Dates: start: 20000914, end: 20041101
  2. PRILOSEC [Concomitant]
     Route: 065
  3. CENTRUM [Concomitant]
     Route: 065
  4. ALLEGRA [Concomitant]
     Indication: HYPERSENSITIVITY
     Route: 065
  5. ZOCOR [Concomitant]
     Indication: BLOOD CHOLESTEROL INCREASED
     Route: 048
     Dates: start: 20020820, end: 20030813

REACTIONS (9)
  - BLOOD CHOLESTEROL INCREASED [None]
  - BLOOD GLUCOSE INCREASED [None]
  - CAROTID ARTERY STENOSIS [None]
  - CEREBELLAR ARTERY THROMBOSIS [None]
  - CEREBROVASCULAR ACCIDENT [None]
  - ELECTROCARDIOGRAM POOR R-WAVE PROGRESSION [None]
  - HYPERTENSION [None]
  - ULCER HAEMORRHAGE [None]
  - VERTEBRAL ARTERY OCCLUSION [None]
